FAERS Safety Report 25750888 (Version 1)
Quarter: 2025Q3

REPORT INFORMATION
  Report Type: Spontaneous
  Country: US (occurrence: US)
  Receive Date: 20250902
  Receipt Date: 20250902
  Transmission Date: 20251020
  Serious: Yes (Hospitalization, Other)
  Sender: SANOFI AVENTIS
  Company Number: US-SA-2025SA260087

PATIENT
  Age: 69 Year
  Sex: Female

DRUGS (5)
  1. DUPIXENT [Suspect]
     Active Substance: DUPILUMAB
     Indication: Back pain
     Dosage: 300 MG, QOW
     Route: 058
     Dates: start: 20250729
  2. EPINEPHRINE [Concomitant]
     Active Substance: EPINEPHRINE
  3. ESOMEPRAZOLE [Concomitant]
     Active Substance: ESOMEPRAZOLE
  4. MONTELUKAST [Concomitant]
     Active Substance: MONTELUKAST
  5. SPIRIVA RESPIMAT [Concomitant]
     Active Substance: TIOTROPIUM BROMIDE

REACTIONS (3)
  - Pneumonia [Not Recovered/Not Resolved]
  - Back disorder [Not Recovered/Not Resolved]
  - Product use in unapproved indication [Unknown]

NARRATIVE: CASE EVENT DATE: 20250101
